FAERS Safety Report 21240829 (Version 2)
Quarter: 2022Q3

REPORT INFORMATION
  Report Type: Spontaneous
  Country: US (occurrence: US)
  Receive Date: 20220823
  Receipt Date: 20220920
  Transmission Date: 20221026
  Serious: Yes (Death, Other)
  Sender: FDA-Public Use
  Company Number: US-BRISTOL-MYERS SQUIBB COMPANY-2022-091432

PATIENT
  Age: 54 Year
  Sex: Male
  Weight: 63 kg

DRUGS (1)
  1. ABECMA [Suspect]
     Active Substance: IDECABTAGENE VICLEUCEL
     Indication: Plasma cell myeloma
     Dosage: DOSE : UNAVAILABLE;     FREQ : UNAVAILABLE
     Route: 065
     Dates: start: 20220614

REACTIONS (10)
  - Plasma cell myeloma [Fatal]
  - Cytokine release syndrome [Unknown]
  - Immune effector cell-associated neurotoxicity syndrome [Unknown]
  - Confusional state [Unknown]
  - Oliguria [Unknown]
  - Hypoalbuminaemia [Unknown]
  - Hypervolaemia [Unknown]
  - Agitation [Unknown]
  - Encephalopathy [Unknown]
  - Azotaemia [Unknown]

NARRATIVE: CASE EVENT DATE: 20220617
